FAERS Safety Report 18489906 (Version 2)
Quarter: 2021Q3

REPORT INFORMATION
  Report Type: Spontaneous
  Country: JP (occurrence: JP)
  Receive Date: 20201111
  Receipt Date: 20210717
  Transmission Date: 20211014
  Serious: Yes (Other)
  Sender: FDA-Public Use
  Company Number: JP-AMGEN-JPNSP2020179679

PATIENT
  Age: 61 Year
  Sex: Female

DRUGS (6)
  1. RANMARK [Suspect]
     Active Substance: DENOSUMAB
     Indication: METASTASES TO BONE
     Dosage: 120 MILLIGRAM, Q4WK
     Route: 058
  2. ERIBULIN MESILATE [Suspect]
     Active Substance: ERIBULIN
     Indication: PRODUCT USED FOR UNKNOWN INDICATION
     Dosage: UNK UNK, ONCE EVERY 3 WK
     Route: 065
  3. ERIBULIN MESILATE [Suspect]
     Active Substance: ERIBULIN
     Dosage: UNK
     Route: 065
  4. CYCLOPHOSPHAMIDE. [Suspect]
     Active Substance: CYCLOPHOSPHAMIDE
     Indication: PRODUCT USED FOR UNKNOWN INDICATION
     Dosage: 500 MILLIGRAM/SQ. METER
     Route: 041
  5. 5 FU [Suspect]
     Active Substance: FLUOROURACIL
     Indication: PRODUCT USED FOR UNKNOWN INDICATION
     Dosage: 500 MG/M2, AS NEEDED
     Route: 041
  6. EPIRUBICIN [EPIRUBICIN HYDROCHLORIDE] [Suspect]
     Active Substance: EPIRUBICIN HYDROCHLORIDE
     Indication: PRODUCT USED FOR UNKNOWN INDICATION
     Dosage: 75 MG/M2, AS NEEDED
     Route: 041

REACTIONS (3)
  - Platelet count decreased [Unknown]
  - Ascites [Recovering/Resolving]
  - Neutrophil count decreased [Unknown]
